FAERS Safety Report 24835999 (Version 1)
Quarter: 2025Q1

REPORT INFORMATION
  Report Type: Spontaneous
  Country: FR (occurrence: FR)
  Receive Date: 20250113
  Receipt Date: 20250113
  Transmission Date: 20250409
  Serious: Yes (Other)
  Sender: SANOFI AVENTIS
  Company Number: None

PATIENT
  Age: 75 Year
  Sex: Female
  Weight: 64 kg

DRUGS (4)
  1. OXALIPLATIN [Suspect]
     Active Substance: OXALIPLATIN
     Indication: B-cell lymphoma
     Route: 042
     Dates: start: 20240924, end: 20241105
  2. DEXAMETHASONE PHOSPHATE [Suspect]
     Active Substance: DEXAMETHASONE PHOSPHATE
     Indication: B-cell lymphoma
     Route: 048
     Dates: start: 20240924, end: 20241108
  3. RITUXIMAB [Suspect]
     Active Substance: RITUXIMAB
     Indication: B-cell lymphoma
     Route: 042
     Dates: start: 20240924, end: 20241105
  4. CYTARABINE [Suspect]
     Active Substance: CYTARABINE
     Indication: B-cell lymphoma
     Route: 042
     Dates: start: 20240925, end: 20241106

REACTIONS (2)
  - Atrioventricular block second degree [Recovered/Resolved with Sequelae]
  - Bronchospasm [Recovered/Resolved]

NARRATIVE: CASE EVENT DATE: 20241016
